FAERS Safety Report 10310874 (Version 2)
Quarter: 2014Q3

REPORT INFORMATION
  Report Type: Spontaneous
  Country: ES (occurrence: ES)
  Receive Date: 20140717
  Receipt Date: 20140717
  Transmission Date: 20150326
  Serious: Yes (Other)
  Sender: FDA-Public Use
  Company Number: PHHY2014ES079887

PATIENT
  Sex: Female

DRUGS (1)
  1. TASIGNA [Suspect]
     Active Substance: NILOTINIB
     Indication: CHRONIC MYELOID LEUKAEMIA
     Dosage: UNK
     Dates: start: 20080820

REACTIONS (7)
  - Intermittent claudication [Unknown]
  - Arteriosclerosis [Unknown]
  - Acute febrile neutrophilic dermatosis [Unknown]
  - Haematotoxicity [Unknown]
  - Peripheral arterial occlusive disease [Unknown]
  - Coronary ostial stenosis [Unknown]
  - Acute coronary syndrome [Unknown]

NARRATIVE: CASE EVENT DATE: 201005
